FAERS Safety Report 5616508-7 (Version None)
Quarter: 2008Q1

REPORT INFORMATION
  Report Type: 
  Country: None (occurrence: None)
  Receive Date: 20080207
  Receipt Date: 20080129
  Transmission Date: 20080703
  Serious: Yes (Other)
  Sender: FDA-Public Use
  Company Number: DE-ELI_LILLY_AND_COMPANY-DE200801006583

PATIENT
  Age: 14 Year
  Sex: Female

DRUGS (5)
  1. OLANZAPINE [Suspect]
     Indication: ANOREXIA
     Dosage: 2.5 MG, DAILY (1/D)
     Route: 048
     Dates: start: 20070101
  2. OLANZAPINE [Suspect]
     Dosage: 5 MG, DAILY (1/D)
     Route: 048
     Dates: start: 20070101
  3. FLUVOXAMINE MALEATE [Concomitant]
  4. KALINOR [Concomitant]
     Dosage: UNK, AS NEEDED
  5. DIAZEPAM [Concomitant]
     Dosage: UNK, AS NEEDED

REACTIONS (1)
  - LEUKOPENIA [None]
